FAERS Safety Report 6925833-9 (Version None)
Quarter: 2010Q3

REPORT INFORMATION
  Report Type: 
  Country: None (occurrence: None)
  Receive Date: 20100811
  Receipt Date: 20100729
  Transmission Date: 20110219
  Serious: Yes (Death, Other)
  Sender: FDA-Public Use
  Company Number: A-CH2010-38555

PATIENT
  Age: 68 Year
  Sex: Female
  Weight: 55.3 kg

DRUGS (11)
  1. TRACLEER [Suspect]
     Indication: PULMONARY ARTERIAL HYPERTENSION
     Dosage: 125 MG, BID, ORAL, 62.5 MG, BID, ORAL
     Route: 048
     Dates: start: 20040823, end: 20040922
  2. TRACLEER [Suspect]
     Indication: PULMONARY ARTERIAL HYPERTENSION
     Dosage: 125 MG, BID, ORAL, 62.5 MG, BID, ORAL
     Route: 048
     Dates: start: 20040923, end: 20100726
  3. SILDENAFIL CITRATE [Concomitant]
  4. WARFARIN SODIUM [Concomitant]
  5. LIPITOR [Concomitant]
  6. LEVOTHYROXINE SODIUM [Concomitant]
  7. AMIODARONE HCL [Concomitant]
  8. FUROSEMIDE [Concomitant]
  9. SPIRONOLACTONE [Concomitant]
  10. POTASSIUM CHLORIDE [Concomitant]
  11. NEXIUM IV [Concomitant]

REACTIONS (8)
  - ALANINE AMINOTRANSFERASE INCREASED [None]
  - ASPARTATE AMINOTRANSFERASE INCREASED [None]
  - BLOOD ALKALINE PHOSPHATASE INCREASED [None]
  - BLOOD BILIRUBIN INCREASED [None]
  - CARDIAC FAILURE [None]
  - DISEASE PROGRESSION [None]
  - PULMONARY ARTERIAL HYPERTENSION [None]
  - RENAL FAILURE [None]
